FAERS Safety Report 16885476 (Version 1)
Quarter: 2019Q4

REPORT INFORMATION
  Report Type: Spontaneous
  Country: US (occurrence: US)
  Receive Date: 20190809
  Receipt Date: 20190809
  Transmission Date: 20200122
  Serious: Yes (Other)
  Sender: FDA-Public Use
  Company Number: None

PATIENT
  Age: 72 Year
  Sex: Female
  Weight: 53.52 kg

DRUGS (8)
  1. VITAMIN D3 [Concomitant]
     Active Substance: CHOLECALCIFEROL
  2. ALTALUBE [Suspect]
     Active Substance: MINERAL OIL\PETROLATUM
     Indication: DRY EYE
     Dosage: ?          QUANTITY:1 TUBE;OTHER FREQUENCY:1X AT BEDTIME 1X D;?
     Route: 047
     Dates: start: 20190202, end: 20190719
  3. ATENOLOL. [Concomitant]
     Active Substance: ATENOLOL
  4. SYNTHROID [Concomitant]
     Active Substance: LEVOTHYROXINE SODIUM
  5. BABY ASPRIN [Concomitant]
     Active Substance: ASPIRIN
  6. AMBIEN [Concomitant]
     Active Substance: ZOLPIDEM TARTRATE
  7. ZOLOFT [Concomitant]
     Active Substance: SERTRALINE HYDROCHLORIDE
  8. COZAAR [Concomitant]
     Active Substance: LOSARTAN POTASSIUM

REACTIONS (4)
  - Dark circles under eyes [None]
  - Eyelid pain [None]
  - Eye irritation [None]
  - Ocular hyperaemia [None]

NARRATIVE: CASE EVENT DATE: 20190202
